FAERS Safety Report 15767486 (Version 1)
Quarter: 2018Q4

REPORT INFORMATION
  Report Type: Report from Study
  Country: BE (occurrence: BE)
  Receive Date: 20181227
  Receipt Date: 20181227
  Transmission Date: 20190205
  Serious: Yes (Death, Hospitalization, Other)
  Sender: FDA-Public Use
  Company Number: BE-TEVA-2018-BE-991326

PATIENT
  Age: 81 Year
  Sex: Male
  Weight: 64.8 kg

DRUGS (6)
  1. 5-FLUOROURACIL [FLUOROURACIL] [Concomitant]
     Active Substance: FLUOROURACIL
     Indication: COLORECTAL CANCER METASTATIC
     Dosage: UNK
     Route: 042
     Dates: start: 20171025, end: 20180321
  2. IRINOTECAN [Suspect]
     Active Substance: IRINOTECAN
     Indication: COLORECTAL CANCER METASTATIC
     Dosage: 1 UNK, EVERY 3 WEEKS
     Route: 042
     Dates: start: 20171025, end: 20180321
  3. ASAFLOW [Concomitant]
     Active Substance: ASPIRIN
     Indication: PROPHYLAXIS
  4. LEUCOVORIN [CALCIUM FOLINATE] [Concomitant]
     Active Substance: LEUCOVORIN
     Indication: COLORECTAL CANCER METASTATIC
     Dosage: UNK
     Route: 042
     Dates: start: 20171025, end: 20180321
  5. BEVACIZUMAB. [Suspect]
     Active Substance: BEVACIZUMAB
     Indication: COLORECTAL CANCER METASTATIC
     Dosage: 1 UNK, EVERY 3 WEEKS
     Route: 042
     Dates: start: 20171025
  6. IRINOTECAN HCL [Suspect]
     Active Substance: IRINOTECAN HYDROCHLORIDE
     Dosage: 1 UNK, EVERY 3 WEEKS
     Route: 042
     Dates: start: 20180411

REACTIONS (7)
  - Cardiogenic shock [Fatal]
  - Hypokalaemia [Not Recovered/Not Resolved]
  - Pyrexia [Recovered/Resolved]
  - Dyspnoea [Not Recovered/Not Resolved]
  - Pneumonia [Fatal]
  - Acute kidney injury [Fatal]
  - Cough [Recovered/Resolved]

NARRATIVE: CASE EVENT DATE: 20180226
